FAERS Safety Report 24196943 (Version 7)
Quarter: 2025Q1

REPORT INFORMATION
  Report Type: Spontaneous
  Country: US (occurrence: US)
  Receive Date: 20240810
  Receipt Date: 20250321
  Transmission Date: 20250409
  Serious: Yes (Hospitalization)
  Sender: SANOFI AVENTIS
  Company Number: US-SA-2024SA232134

PATIENT
  Age: 26 Year
  Sex: Female
  Weight: 90.91 kg

DRUGS (6)
  1. CEREZYME [Suspect]
     Active Substance: IMIGLUCERASE
     Indication: Gaucher^s disease
     Dosage: 2800 U, QOW
     Route: 042
     Dates: start: 202307
  2. EPINEPHRINE [Concomitant]
     Active Substance: EPINEPHRINE
  3. SODIUM CHLORIDE [Concomitant]
     Active Substance: SODIUM CHLORIDE
  4. SODIUM CHLORIDE [Concomitant]
     Active Substance: SODIUM CHLORIDE
  5. SODIUM CHLORIDE [Concomitant]
     Active Substance: SODIUM CHLORIDE
  6. STERILE WATER [Concomitant]
     Active Substance: WATER

REACTIONS (6)
  - Arthralgia [Unknown]
  - Pharyngitis [Unknown]
  - Fall [Unknown]
  - Fatigue [Unknown]
  - Dizziness [Unknown]
  - Maternal exposure during pregnancy [Unknown]

NARRATIVE: CASE EVENT DATE: 20240101
